FAERS Safety Report 9845838 (Version 1)
Quarter: 2014Q1

REPORT INFORMATION
  Report Type: Spontaneous
  Country: US (occurrence: None)
  Receive Date: 20140123
  Receipt Date: 20140123
  Transmission Date: 20141002
  Serious: Yes (Other)
  Sender: FDA-Public Use
  Company Number: None

PATIENT
  Age: 55 Year
  Sex: Male
  Weight: 83.46 kg

DRUGS (1)
  1. LEVOFLOXACIN/LEVAQUIN [Suspect]
     Indication: LUNG INFECTION
     Dosage: 500 MG  1 TABLET DAILY  DAILY  BY MOUTH
     Route: 048
     Dates: start: 20121019, end: 20130524

REACTIONS (1)
  - Tendon rupture [None]
